FAERS Safety Report 5272120-3 (Version None)
Quarter: 2007Q1

REPORT INFORMATION
  Report Type: 
  Country: None (occurrence: None)
  Receive Date: 20070319
  Receipt Date: 20070312
  Transmission Date: 20070707
  Serious: Yes (Death)
  Sender: FDA-Public Use
  Company Number: 011566

PATIENT
  Age: 60 Year
  Sex: Male

DRUGS (5)
  1. TRAZODONE HCL [Suspect]
     Dosage: ORAL
     Route: 048
  2. SERTRALINE [Suspect]
     Dosage: UNK, UNK, ORAL
     Route: 048
  3. FENTANYL [Concomitant]
     Indication: BACK PAIN
     Dosage: ORAL
     Route: 048
     Dates: start: 20060101
  4. COCAINE (COCAINE) [Suspect]
  5. LORTAB [Concomitant]

REACTIONS (6)
  - ACCIDENTAL DEATH [None]
  - DRUG ABUSER [None]
  - DRUG TOXICITY [None]
  - INCORRECT ROUTE OF DRUG ADMINISTRATION [None]
  - INTENTIONAL DRUG MISUSE [None]
  - MULTI-ORGAN FAILURE [None]
